FAERS Safety Report 6434726-5 (Version None)
Quarter: 2009Q4

REPORT INFORMATION
  Report Type: 
  Country: None (occurrence: None)
  Receive Date: 20091110
  Receipt Date: 20091106
  Transmission Date: 20100525
  Serious: Yes (Other)
  Sender: FDA-Public Use
  Company Number: US-TEVA-214584USA

PATIENT
  Sex: Female

DRUGS (1)
  1. GABAPENTIN [Suspect]
     Indication: DIABETIC NEUROPATHY
     Dates: start: 20060601

REACTIONS (11)
  - ARTHRALGIA [None]
  - BLOOD PRESSURE ABNORMAL [None]
  - CARDIAC DISORDER [None]
  - CONTUSION [None]
  - DEPENDENCE [None]
  - DRUG WITHDRAWAL SYNDROME [None]
  - HEADACHE [None]
  - LIMB DISCOMFORT [None]
  - SEDATION [None]
  - SUICIDAL BEHAVIOUR [None]
  - TREMOR [None]
